FAERS Safety Report 23353895 (Version 1)
Quarter: 2024Q1

REPORT INFORMATION
  Report Type: Spontaneous
  Country: DE (occurrence: DE)
  Receive Date: 20240101
  Receipt Date: 20240101
  Transmission Date: 20240410
  Serious: Yes (Hospitalization, Other)
  Sender: FDA-Public Use
  Company Number: DE-GLAXOSMITHKLINE-DE2023EME174909

PATIENT
  Age: 10 Year
  Sex: Female

DRUGS (1)
  1. AMOXICILLIN\CLAVULANIC ACID [Suspect]
     Active Substance: AMOXICILLIN\CLAVULANIC ACID
     Indication: Bronchitis
     Dosage: 3 X 5 ML (CORRESPONDING TO 3 X 400/57 MG)
     Route: 065

REACTIONS (6)
  - Drug-induced liver injury [Unknown]
  - Hepatitis acute [Unknown]
  - Jaundice cholestatic [Unknown]
  - Chromaturia [Unknown]
  - Faeces discoloured [Unknown]
  - Cholestatic pruritus [Unknown]
